FAERS Safety Report 21254808 (Version 2)
Quarter: 2022Q3

REPORT INFORMATION
  Report Type: Spontaneous
  Country: US (occurrence: US)
  Receive Date: 20220825
  Receipt Date: 20220916
  Transmission Date: 20221026
  Serious: Yes (Hospitalization)
  Sender: FDA-Public Use
  Company Number: US-TEVA-2022-US-2066470

PATIENT
  Age: 60 Year
  Sex: Female

DRUGS (1)
  1. OXYCODONE [Suspect]
     Active Substance: OXYCODONE
     Indication: Drug abuse
     Dosage: PILLS
     Route: 048

REACTIONS (4)
  - Encephalopathy [Unknown]
  - Anterograde amnesia [Unknown]
  - Drug abuse [Unknown]
  - Delirium [Unknown]
